FAERS Safety Report 24131590 (Version 1)
Quarter: 2024Q3

REPORT INFORMATION
  Report Type: Report from Study
  Country: FR (occurrence: FR)
  Receive Date: 20240724
  Receipt Date: 20240724
  Transmission Date: 20241016
  Serious: Yes (Death, Other)
  Sender: AUROBINDO
  Company Number: FR-AUROBINDO-AUR-APL-2024-036507

PATIENT
  Age: 17 Year
  Sex: Male

DRUGS (1)
  1. METHYLPHENIDATE [Suspect]
     Active Substance: METHYLPHENIDATE
     Indication: Attention deficit hyperactivity disorder
     Dosage: 45 MILLIGRAM, DAILY
     Route: 065

REACTIONS (34)
  - Mitral valve incompetence [Fatal]
  - Ventricular hypokinesia [Unknown]
  - Hemiplegia [Unknown]
  - Pneumonia [Unknown]
  - Cerebral infarction [Unknown]
  - Cyanosis central [Unknown]
  - Cardiac failure [Unknown]
  - Dilated cardiomyopathy [Unknown]
  - Congestive hepatopathy [Unknown]
  - Pulmonary embolism [Unknown]
  - Pulmonary infarction [Unknown]
  - Atrial thrombosis [Unknown]
  - Hepatic necrosis [Unknown]
  - Alanine aminotransferase increased [Unknown]
  - Poor peripheral circulation [Unknown]
  - Aspartate aminotransferase increased [Unknown]
  - Influenza like illness [Unknown]
  - International normalised ratio increased [Unknown]
  - Palpitations [Unknown]
  - Dyspnoea [Unknown]
  - Aphasia [Unknown]
  - Leukocytosis [Unknown]
  - Skin discolouration [Unknown]
  - Sinus tachycardia [Unknown]
  - Hepatomegaly [Unknown]
  - Oxygen saturation decreased [Unknown]
  - Orthopnoea [Unknown]
  - Pulse absent [Unknown]
  - Anxiety [Unknown]
  - Ejection fraction decreased [Unknown]
  - Akathisia [Unknown]
  - Neutrophil count increased [Unknown]
  - Fibrin D dimer increased [Unknown]
  - Heart rate increased [Unknown]
